FAERS Safety Report 18900744 (Version 2)
Quarter: 2021Q2

REPORT INFORMATION
  Report Type: Spontaneous
  Country: US (occurrence: US)
  Receive Date: 20210217
  Receipt Date: 20210518
  Transmission Date: 20210717
  Serious: No
  Sender: FDA-Public Use
  Company Number: US-CELLTRION INC.-2021US001769

PATIENT

DRUGS (24)
  1. ONCOVIN [Suspect]
     Active Substance: VINCRISTINE SULFATE
     Indication: PRIMARY MEDIASTINAL LARGE B-CELL LYMPHOMA
     Dosage: 0.7 MG, CONTINUOUS
     Route: 042
     Dates: start: 20210215, end: 20210215
  2. EMEND [Concomitant]
     Active Substance: APREPITANT
     Dosage: 150 MG, ONCE  IN SODIUM CHLORIDE 0.9% 100 ML
     Route: 042
     Dates: start: 20210215, end: 20210215
  3. DELTASONE [Interacting]
     Active Substance: PREDNISONE
     Dosage: 2 TABS
     Route: 048
  4. DELTASONE [Interacting]
     Active Substance: PREDNISONE
     Dosage: 2 TABS
     Route: 048
  5. TRUXIMA [Suspect]
     Active Substance: RITUXIMAB-ABBS
     Indication: PRIMARY MEDIASTINAL LARGE B-CELL LYMPHOMA
     Dosage: 700 MG, EVERY 21 DAYS
     Route: 042
     Dates: start: 20210125
  6. TRUXIMA [Suspect]
     Active Substance: RITUXIMAB-ABBS
     Dosage: 700 MG, EVERY 21 DAYS
     Route: 042
     Dates: start: 20210215, end: 20210215
  7. ADRIAMYCIN [Suspect]
     Active Substance: DOXORUBICIN HYDROCHLORIDE
     Indication: PRIMARY MEDIASTINAL LARGE B-CELL LYMPHOMA
     Dosage: 21 MG, CONTINUOUS
     Route: 042
     Dates: start: 20210215, end: 20210215
  8. ACETAMINOPHEN. [Concomitant]
     Active Substance: ACETAMINOPHEN
     Dosage: 650 MG, ONCE
     Route: 048
     Dates: start: 20210215, end: 20210215
  9. LIDOCAINE/PRILOCAINE [Concomitant]
     Active Substance: LIDOCAINE\PRILOCAINE
     Route: 065
  10. PROTONIX [Concomitant]
     Active Substance: PANTOPRAZOLE SODIUM
     Dosage: 1 TAB, DAILY (TABLET, DELAYED RESPONSE)
     Route: 048
  11. VITAMIN C [Concomitant]
     Active Substance: ASCORBIC ACID
     Dosage: 250 MILLIGRAM, DAILY
     Route: 048
  12. PROTONIX [Concomitant]
     Active Substance: PANTOPRAZOLE SODIUM
     Dosage: 40 MILLIGRAM, DAILY (TABLET, DELAYED RESPONSE)
     Route: 048
  13. DELTASONE [Interacting]
     Active Substance: PREDNISONE
     Dosage: 2 TABS
     Route: 048
  14. TOPOSAR [Suspect]
     Active Substance: ETOPOSIDE
     Indication: PRIMARY MEDIASTINAL LARGE B-CELL LYMPHOMA
     Dosage: 106 MG, CONTINUOUS
     Route: 042
     Dates: start: 20210215, end: 20210215
  15. COMPAZINE [Concomitant]
     Active Substance: PROCHLORPERAZINE MALEATE
     Indication: NAUSEA
     Dosage: 1 TAB, Q6HR AS NEEDED FOR NAUSEA(2ND LINE)
     Route: 048
  16. XARELTO [Concomitant]
     Active Substance: RIVAROXABAN
     Indication: EMBOLISM VENOUS
     Dosage: 1 TAB, DAILY (WITH DINNER) TAKE WITH FOOD
     Route: 048
  17. BACTRIM DS [Concomitant]
     Active Substance: SULFAMETHOXAZOLE\TRIMETHOPRIM
     Dosage: 1 TABLET, FOR 10 DAYS
     Route: 048
  18. PEPCID [Concomitant]
     Active Substance: FAMOTIDINE
     Dosage: 20 MG, ONCE  IN SODIUM CHLORIDE 0.9% 50 ML
     Route: 042
  19. BENADRYL [Concomitant]
     Active Substance: DIPHENHYDRAMINE HYDROCHLORIDE
     Dosage: 25 MG, ONCE IN SODIUM CHLORIDE 0.9% 50 ML
     Route: 042
     Dates: start: 20210215, end: 20210215
  20. ALOXI [Concomitant]
     Active Substance: PALONOSETRON HYDROCHLORIDE
     Dosage: 0.25 MG, ONCE
     Route: 042
     Dates: start: 20210215, end: 20210215
  21. DELTASONE [Concomitant]
     Active Substance: PREDNISONE
     Dosage: 1 TAB, DAILY
     Route: 048
  22. DELTASONE [Interacting]
     Active Substance: PREDNISONE
     Dosage: 2 TABS
     Route: 048
  23. SEPTRA DS [Concomitant]
     Active Substance: SULFAMETHOXAZOLE\TRIMETHOPRIM
     Dosage: 1 TABLET, FOR 10 DAYS
     Route: 048
  24. DECADRON [Concomitant]
     Active Substance: DEXAMETHASONE
     Dosage: 10 MG, ONCE IN SODIUM CHLORIDE 0.9% ML IVPB
     Route: 042
     Dates: start: 20210215, end: 20210215

REACTIONS (2)
  - Vomiting [Unknown]
  - Nausea [Unknown]

NARRATIVE: CASE EVENT DATE: 20210217
